FAERS Safety Report 21853015 (Version 1)
Quarter: 2023Q1

REPORT INFORMATION
  Report Type: Spontaneous
  Country: US (occurrence: US)
  Receive Date: 20230112
  Receipt Date: 20230112
  Transmission Date: 20230418
  Serious: Yes (Hospitalization, Other)
  Sender: FDA-Public Use
  Company Number: US-GLAXOSMITHKLINE-USCH2023AMR001369

PATIENT

DRUGS (3)
  1. ADVIL [Suspect]
     Active Substance: IBUPROFEN
     Indication: Product used for unknown indication
     Dosage: UNK
     Route: 065
  2. SKYRIZI [Suspect]
     Active Substance: RISANKIZUMAB-RZAA
     Indication: Psoriasis
     Dosage: 150 MG, EVERY 12 WEEKS
     Route: 058
     Dates: start: 20201207
  3. TYLENOL [Suspect]
     Active Substance: ACETAMINOPHEN
     Indication: Product used for unknown indication
     Dosage: UNK
     Route: 065

REACTIONS (5)
  - Diverticulum [Recovering/Resolving]
  - Large intestinal haemorrhage [Recovering/Resolving]
  - Gastric ulcer haemorrhage [Unknown]
  - Knee arthroplasty [Unknown]
  - Anaemia [Unknown]

NARRATIVE: CASE EVENT DATE: 20220801
